FAERS Safety Report 7996075-3 (Version None)
Quarter: 2011Q4

REPORT INFORMATION
  Report Type: 
  Country: None (occurrence: None)
  Receive Date: 20111220
  Receipt Date: 20111209
  Transmission Date: 20120403
  Serious: Yes (Other)
  Sender: FDA-Public Use
  Company Number: PHHY2005MX04534

PATIENT
  Sex: Female

DRUGS (4)
  1. LESCOL XL [Suspect]
  2. DIOVAN [Concomitant]
  3. CALCIUM [Concomitant]
  4. LEVOTHYROXINE SODIUM [Concomitant]

REACTIONS (2)
  - HEADACHE [None]
  - EYE HAEMORRHAGE [None]
